FAERS Safety Report 8015696-5 (Version None)
Quarter: 2011Q4

REPORT INFORMATION
  Report Type: 
  Country: None (occurrence: None)
  Receive Date: 20111228
  Receipt Date: 20111228
  Transmission Date: 20120403
  Serious: No
  Sender: FDA-Public Use
  Company Number: None

PATIENT
  Sex: Female

DRUGS (8)
  1. FOLIC ACID [Concomitant]
  2. METHOTREXATE [Concomitant]
  3. VITAMIN TAB [Concomitant]
  4. TOPROL-XL [Concomitant]
  5. NEXIUM [Concomitant]
  6. ENBREL [Suspect]
     Indication: RHEUMATOID ARTHRITIS
     Dosage: 50 MG QW SQ
     Route: 058
     Dates: start: 20111205
  7. VITAMIN D [Concomitant]
  8. AMLODIPINE [Concomitant]

REACTIONS (1)
  - PARAESTHESIA [None]
